FAERS Safety Report 8157539-5 (Version None)
Quarter: 2012Q1

REPORT INFORMATION
  Report Type: 
  Country: None (occurrence: None)
  Receive Date: 20120222
  Receipt Date: 20110419
  Transmission Date: 20120608
  Serious: No
  Sender: FDA-Public Use
  Company Number: US-ASTRAZENECA-2011SE23018

PATIENT
  Age: 67 Year
  Sex: Male

DRUGS (4)
  1. TENORMIN [Suspect]
     Indication: HYPERTENSION
     Route: 048
     Dates: start: 20010201
  2. IMDUR [Concomitant]
  3. PRAVASTATIN [Concomitant]
  4. COZAAR [Concomitant]

REACTIONS (2)
  - INDIFFERENCE [None]
  - FATIGUE [None]
